FAERS Safety Report 5080328-5 (Version None)
Quarter: 2006Q3

REPORT INFORMATION
  Report Type: 
  Country: None (occurrence: None)
  Receive Date: 20060815
  Receipt Date: 20060807
  Transmission Date: 20061208
  Serious: Yes (Hospitalization)
  Sender: FDA-Public Use
  Company Number: ES-JNJFOC-20060802032

PATIENT
  Age: 24 Year
  Sex: Female

DRUGS (2)
  1. ORTHO EVRA [Suspect]
     Indication: CONTRACEPTION
     Route: 062
  2. ACETYLSALICYLIC ACID SRT [Concomitant]
     Route: 048

REACTIONS (2)
  - ANGIONEUROTIC OEDEMA [None]
  - FLATULENCE [None]
